FAERS Safety Report 7237645-X (Version None)
Quarter: 2011Q1

REPORT INFORMATION
  Report Type: 
  Country: None (occurrence: None)
  Receive Date: 20110121
  Receipt Date: 20110113
  Transmission Date: 20110831
  Serious: Yes (Hospitalization)
  Sender: FDA-Public Use
  Company Number: PHFR2010GB05792

PATIENT
  Sex: Female

DRUGS (2)
  1. CLOZARIL [Suspect]
     Indication: SCHIZOPHRENIA
     Dosage: UNK
     Route: 048
     Dates: start: 20020813
  2. CLOZARIL [Suspect]
     Route: 048

REACTIONS (4)
  - OVERDOSE [None]
  - ABDOMINAL ABSCESS [None]
  - ABDOMINAL MASS [None]
  - INTESTINAL FISTULA [None]
